FAERS Safety Report 13648432 (Version 1)
Quarter: 2017Q2

REPORT INFORMATION
  Report Type: Spontaneous
  Country: SG (occurrence: SG)
  Receive Date: 20170613
  Receipt Date: 20170613
  Transmission Date: 20170830
  Serious: Yes (Hospitalization)
  Sender: FDA-Public Use
  Company Number: SG-UNICHEM LABORATORIES LIMITED-UCM201706-000171

PATIENT
  Age: 47 Year
  Sex: Female

DRUGS (1)
  1. QUETIAPINE. [Suspect]
     Active Substance: QUETIAPINE

REACTIONS (8)
  - Neck pain [Unknown]
  - Epistaxis [Unknown]
  - Haematemesis [Unknown]
  - Dizziness [Recovered/Resolved]
  - Headache [Unknown]
  - Fall [Unknown]
  - Skull fracture [Unknown]
  - Vertigo [Recovered/Resolved]
